FAERS Safety Report 5725013-9 (Version None)
Quarter: 2008Q2

REPORT INFORMATION
  Report Type: 
  Country: None (occurrence: None)
  Receive Date: 20080501
  Receipt Date: 20080423
  Transmission Date: 20081010
  Serious: Yes (Death)
  Sender: FDA-Public Use
  Company Number: DE-ELI_LILLY_AND_COMPANY-DE200804004370

PATIENT
  Sex: Male
  Weight: 80 kg

DRUGS (3)
  1. CIALIS [Suspect]
     Dosage: 10 MG, ONE OR TWO TABLETS
     Route: 065
     Dates: start: 20071221
  2. LEVITRA [Interacting]
     Dosage: UNK, UNKNOWN
     Route: 065
  3. VIAGRA [Interacting]
     Dosage: UNK, UNKNOWN
     Route: 065

REACTIONS (2)
  - DEATH [None]
  - DRUG INTERACTION [None]
